FAERS Safety Report 15832378 (Version 1)
Quarter: 2018Q4

REPORT INFORMATION
  Report Type: Spontaneous
  Country: US (occurrence: US)
  Receive Date: 20181220
  Receipt Date: 20181220
  Transmission Date: 20190205
  Serious: No
  Sender: FDA-Public Use
  Company Number: None

PATIENT
  Age: 62 Year
  Sex: Female

DRUGS (1)
  1. PROLIA [Suspect]
     Active Substance: DENOSUMAB
     Indication: SENILE OSTEOPOROSIS
     Dosage: ?          OTHER FREQUENCY:Q6MONTHS ;?
     Route: 058
     Dates: start: 20151010

REACTIONS (2)
  - Post procedural pneumonia [None]
  - Cerebrovascular accident [None]

NARRATIVE: CASE EVENT DATE: 20181015
